FAERS Safety Report 6678731-2 (Version None)
Quarter: 2010Q2

REPORT INFORMATION
  Report Type: 
  Country: None (occurrence: None)
  Receive Date: 20100413
  Receipt Date: 20100401
  Transmission Date: 20101027
  Serious: Yes (Other)
  Sender: FDA-Public Use
  Company Number: AU-PFIZER INC-2009291350

PATIENT
  Age: 41 Year
  Sex: Male
  Weight: 75 kg

DRUGS (12)
  1. MARAVIROC [Suspect]
     Indication: HIV INFECTION
     Dosage: 300 MG, 1X/DAY
     Route: 048
     Dates: start: 20050606, end: 20070215
  2. COMBIVIR [Suspect]
     Indication: HIV INFECTION
     Dosage: 2 TABLETS TWICE DAILY
     Route: 048
     Dates: start: 20050606, end: 20070215
  3. VALIUM [Concomitant]
     Dosage: UNK
     Route: 048
     Dates: start: 20071031
  4. VIAGRA [Concomitant]
     Dosage: UNK
     Route: 048
     Dates: start: 20040724
  5. RECTINOL [Concomitant]
     Dosage: UNK
     Route: 061
     Dates: start: 20060830
  6. PANVAC VF [Concomitant]
     Dosage: UNK
     Route: 058
     Dates: start: 20091026, end: 20091026
  7. BETNOVATE [Concomitant]
     Dosage: UNK
     Route: 061
     Dates: start: 20091018
  8. ELOCON [Concomitant]
     Dosage: UNK
     Route: 061
     Dates: start: 20050511
  9. DAIVONEX [Concomitant]
     Dosage: UNK
     Route: 061
     Dates: start: 20080513
  10. NOVASONE [Concomitant]
     Dosage: UNK
     Route: 061
     Dates: start: 20090316
  11. EFAVIRENZ [Concomitant]
     Dosage: UNK
     Route: 048
     Dates: start: 20090518
  12. TRUVADA [Concomitant]
     Dosage: UNK
     Route: 048
     Dates: start: 20090518

REACTIONS (1)
  - MALIGNANT MELANOMA [None]
